FAERS Safety Report 6914967-0 (Version None)
Quarter: 2010Q3

REPORT INFORMATION
  Report Type: 
  Country: None (occurrence: None)
  Receive Date: 20100809
  Receipt Date: 20100730
  Transmission Date: 20110219
  Serious: Yes (Hospitalization, Other)
  Sender: FDA-Public Use
  Company Number: BR-ABBOTT-10P-020-0660855-00

PATIENT
  Sex: Female
  Weight: 47 kg

DRUGS (9)
  1. HUMIRA [Suspect]
     Indication: RHEUMATOID ARTHRITIS
     Route: 058
     Dates: start: 20081101, end: 20100301
  2. HYDROXYCHLOROQUINE,METHYLPREDNISOLONE,NIMESULIDE,FLUXOETINE,CODEINEPHO [Concomitant]
     Indication: RHEUMATOID ARTHRITIS
     Dosage: 50MG+1MG+110MG+10MG+5MG, 1 IN 1 D, 2
  3. ABLOK PLUS [Concomitant]
     Indication: HYPERTENSION
  4. OMEPRAZOLE [Concomitant]
     Indication: GASTRIC DISORDER
  5. MONOCORDIL [Concomitant]
     Indication: CARDIOVASCULAR DISORDER
     Dates: start: 20100301
  6. CILOSTAZOL [Concomitant]
     Indication: CARDIAC DISORDER
  7. LOSARTAN POSTASSIUM [Concomitant]
     Indication: CARDIAC DISORDER
  8. SIMVASTATIN [Concomitant]
     Indication: PROPHYLAXIS
  9. SIMVASTATIN [Concomitant]
     Indication: BLOOD CHOLESTEROL ABNORMAL

REACTIONS (6)
  - CARDIOVASCULAR DISORDER [None]
  - CHILLBLAINS [None]
  - FOOT DEFORMITY [None]
  - INFLAMMATION [None]
  - SKIN NECROSIS [None]
  - WOUND [None]
